FAERS Safety Report 12955987 (Version 4)
Quarter: 2016Q4

REPORT INFORMATION
  Report Type: Spontaneous
  Country: KR (occurrence: KR)
  Receive Date: 20161118
  Receipt Date: 20161230
  Transmission Date: 20170207
  Serious: Yes (Other)
  Sender: FDA-Public Use
  Company Number: KR-009507513-1610KOR000655

PATIENT
  Age: 63 Year
  Sex: Female
  Weight: 42.8 kg

DRUGS (22)
  1. EMEND (FOSAPREPITANT DIMEGLUMINE) [Suspect]
     Active Substance: FOSAPREPITANT DIMEGLUMINE
     Dosage: 150 MG, ONCE
     Route: 042
     Dates: start: 20161114, end: 20161114
  2. ADIPAM [Concomitant]
     Indication: PRURITUS
     Dosage: 10 MG (1 TABLET), TID
     Route: 048
     Dates: start: 20160906, end: 20160906
  3. ZOVIRAX [Concomitant]
     Active Substance: ACYCLOVIR
     Indication: HERPES VIRUS INFECTION
     Dosage: 200 MG (1 TABLET), TID
     Route: 048
     Dates: start: 20160725
  4. 5-FU CHOO NGWAE [Concomitant]
     Dosage: STRENGHT:(500MG/10ML),  DOSE: 2630 MG (CYCLE 8), QD
     Route: 042
     Dates: start: 20160906, end: 20160908
  5. CIPROURO SR [Concomitant]
     Indication: LIVER ABSCESS
     Dosage: 500 MG (1 TABLET), BID
     Route: 048
     Dates: start: 20160906, end: 20160919
  6. NEXIUM [Concomitant]
     Active Substance: ESOMEPRAZOLE MAGNESIUM
     Indication: PROPHYLAXIS AGAINST GASTROINTESTINAL ULCER
     Dosage: 20 MG (1 TABLET), ONCE
     Route: 048
     Dates: start: 20160906
  7. EMEND (FOSAPREPITANT DIMEGLUMINE) [Suspect]
     Active Substance: FOSAPREPITANT DIMEGLUMINE
     Indication: PROPHYLAXIS OF NAUSEA AND VOMITING
     Dosage: 150 MG, ONCE
     Route: 042
     Dates: start: 20160906, end: 20160906
  8. EMEND (FOSAPREPITANT DIMEGLUMINE) [Suspect]
     Active Substance: FOSAPREPITANT DIMEGLUMINE
     Dosage: 150 MG, ONCE
     Route: 042
     Dates: start: 20161101, end: 20161101
  9. DEXAMETHASONE YUHAN MEDICA [Concomitant]
     Indication: PROPHYLAXIS OF NAUSEA AND VOMITING
     Dosage: 4 MG, BID
     Route: 048
     Dates: start: 20160907, end: 20160909
  10. EMEND (FOSAPREPITANT DIMEGLUMINE) [Suspect]
     Active Substance: FOSAPREPITANT DIMEGLUMINE
     Dosage: 150 MG, ONCE
     Route: 042
     Dates: start: 20160926, end: 20160926
  11. FERBON [Concomitant]
     Indication: COLON CANCER
     Dosage: STRENGHT (100MG/10ML), 440 MG (CYCLE 8), QD
     Route: 042
     Dates: start: 20160906, end: 20160906
  12. DONG A GASTER [Concomitant]
     Indication: PROPHYLAXIS AGAINST GASTROINTESTINAL ULCER
     Dosage: 20 MG (AMP), QD
     Route: 042
     Dates: start: 20160906, end: 20160906
  13. EMEND (FOSAPREPITANT DIMEGLUMINE) [Suspect]
     Active Substance: FOSAPREPITANT DIMEGLUMINE
     Dosage: 150 MG, ONCE
     Route: 042
     Dates: start: 20161205, end: 20161205
  14. 5-FU CHOO NGWAE [Concomitant]
     Indication: COLON CANCER
     Dosage: STRENGHT:(500MG/10ML), 440 MG (CYCLE 8), QD
     Route: 042
     Dates: start: 20160906, end: 20160906
  15. PENIRAMIN [Concomitant]
     Indication: DRUG TOXICITY PROPHYLAXIS
     Dosage: 4 MG, QD
     Route: 042
     Dates: start: 20160906, end: 20160906
  16. DICAMAX 1000 [Concomitant]
     Indication: OSTEOPOROSIS
     Dosage: ONE 1000MG TABLET, QD
     Route: 048
     Dates: start: 20160608
  17. YUHAN DEXAMETHASONE DISODIUM PHOSPATE [Concomitant]
     Indication: PROPHYLAXIS OF NAUSEA AND VOMITING
     Dosage: 10 MG, QD
     Route: 042
     Dates: start: 20160906, end: 20160906
  18. ALOXI [Concomitant]
     Active Substance: PALONOSETRON HYDROCHLORIDE
     Indication: PROPHYLAXIS OF NAUSEA AND VOMITING
     Dosage: 0.25 MG, QD
     Route: 042
     Dates: start: 20160906, end: 20160906
  19. EMEND (FOSAPREPITANT DIMEGLUMINE) [Suspect]
     Active Substance: FOSAPREPITANT DIMEGLUMINE
     Dosage: 150 MG, ONCE
     Route: 042
     Dates: start: 20161011, end: 20161011
  20. AVASTIN [Concomitant]
     Active Substance: BEVACIZUMAB
     Indication: COLON CANCER
     Dosage: 230 MG (CYCLE 8), QD
     Route: 042
     Dates: start: 20160906, end: 20160906
  21. ELOXATIN [Concomitant]
     Active Substance: OXALIPLATIN
     Indication: COLON CANCER
     Dosage: STRENGHT (100MG/20ML), 90 MG (CYCLE 8), QD
     Route: 042
     Dates: start: 20160906, end: 20160906
  22. XYZAL [Concomitant]
     Active Substance: LEVOCETIRIZINE DIHYDROCHLORIDE
     Indication: PRURITUS
     Dosage: 5 MG (1 TABLET), QD
     Route: 048
     Dates: start: 20160906, end: 20160906

REACTIONS (8)
  - Vomiting [Recovered/Resolved]
  - Anal ulcer [Recovered/Resolved]
  - Hypoaesthesia [Not Recovered/Not Resolved]
  - Insomnia [Recovered/Resolved]
  - Hepatic enzyme increased [Recovered/Resolved]
  - Gastrointestinal motility disorder [Recovered/Resolved]
  - Urinary tract infection [Recovered/Resolved]
  - Constipation [Recovered/Resolved]

NARRATIVE: CASE EVENT DATE: 20160908
